FAERS Safety Report 9300503 (Version 2)
Quarter: 2013Q2

REPORT INFORMATION
  Report Type: Spontaneous
  Country: BR (occurrence: BR)
  Receive Date: 20130521
  Receipt Date: 20130531
  Transmission Date: 20140414
  Serious: Yes (Hospitalization, Other)
  Sender: FDA-Public Use
  Company Number: BR-BRISTOL-MYERS SQUIBB COMPANY-18900209

PATIENT
  Age: 63 Year
  Sex: Female
  Weight: 62 kg

DRUGS (6)
  1. ONGLYZA TABS 5 MG [Suspect]
     Indication: DIABETES MELLITUS
     Route: 048
  2. CRESTOR [Suspect]
     Indication: BLOOD CHOLESTEROL INCREASED
     Dosage: STOP DATE:2011
     Route: 048
     Dates: start: 2010, end: 2011
  3. DIOVAN [Concomitant]
     Indication: HYPERTENSION
  4. GLIFAGE [Concomitant]
     Indication: DIABETES MELLITUS
  5. PANTOPRAZOLE [Concomitant]
  6. ASPIRINA [Concomitant]
     Dosage: PREVENT.

REACTIONS (4)
  - Coronary artery occlusion [Recovered/Resolved]
  - Thyroid neoplasm [Recovered/Resolved]
  - Blood cholesterol increased [Unknown]
  - Constipation [Recovered/Resolved]
